FAERS Safety Report 5753074-X (Version None)
Quarter: 2008Q2

REPORT INFORMATION
  Report Type: 
  Country: None (occurrence: None)
  Receive Date: 20080527
  Receipt Date: 20080522
  Transmission Date: 20081010
  Serious: Yes (Hospitalization)
  Sender: FDA-Public Use
  Company Number: 2008-00547

PATIENT
  Age: 77 Year
  Sex: Male

DRUGS (6)
  1. VELCADE [Suspect]
     Indication: MULTIPLE MYELOMA
     Dosage: 2.00 MG, INTRAVENOUS
     Route: 042
     Dates: start: 20070901, end: 20080127
  2. THALIDOMIDE [Suspect]
     Indication: MULTIPLE MYELOMA
     Dosage: 100.00 MG, ORAL
     Route: 048
     Dates: start: 20070901, end: 20080127
  3. ACETYLSALICYLIC ACID SRT [Concomitant]
  4. LANSOPRAZOLE [Concomitant]
  5. MELPHALAN [Concomitant]
  6. PREDNISONE TAB [Concomitant]

REACTIONS (2)
  - ATRIAL FIBRILLATION [None]
  - SYNCOPE [None]
